FAERS Safety Report 7493760-7 (Version None)
Quarter: 2011Q2

REPORT INFORMATION
  Report Type: 
  Country: None (occurrence: None)
  Receive Date: 20110513
  Receipt Date: 20110503
  Transmission Date: 20111010
  Serious: Yes (Life-Threatening, Hospitalization, Other)
  Sender: FDA-Public Use
  Company Number: 113583 -1

PATIENT
  Age: 36 Year
  Sex: Female
  Weight: 82 kg

DRUGS (17)
  1. DEXAMETHASONE [Concomitant]
  2. PROCHLORPERAZINE (PROCHLOPERAZINE) [Concomitant]
  3. GRAVOL (DIMENHYDRINATE) [Concomitant]
  4. SENOKOT (SENNA ALEXANDRINA) [Concomitant]
  5. FOLIC ACID [Concomitant]
  6. RADIATION (RADIATION) UNKNOWN [Suspect]
     Indication: NON-SMALL CELL LUNG CANCER STAGE III
     Dosage: 6600 D/F, OTHER
     Dates: start: 20100510, end: 20100624
  7. HYDROMORPHONE (HYDROMORPHONE) [Concomitant]
  8. COLACE (DOCUSATE SODIUM) [Concomitant]
  9. LORAZEPAM [Concomitant]
  10. ETOPOSIDE [Suspect]
     Indication: NON-SMALL CELL LUNG CANCER STAGE III
     Dosage: 110 MG, OTHER, INTRAVENOUS
     Route: 042
     Dates: start: 20100510, end: 20100611
  11. ETOPOSIDE [Suspect]
     Indication: NON-SMALL CELL LUNG CANCER STAGE III
     Dosage: 110 MG, OTHER, INTRAVENOUS
     Route: 042
     Dates: start: 20100719, end: 20100723
  12. FENTANYL [Concomitant]
  13. LOSEC (OMEPRAZOLE SODIUM) [Concomitant]
  14. ONDANSETRON [Concomitant]
  15. CISPLATIN [Suspect]
     Indication: NON-SMALL CELL LUNG CANCER STAGE III
     Dosage: 110 MG, OTHER, INTRAVENOUS
     Route: 042
     Dates: start: 20100510, end: 20100614
  16. CISPLATIN [Suspect]
     Indication: NON-SMALL CELL LUNG CANCER STAGE III
     Dosage: 110 MG, OTHER, INTRAVENOUS
     Route: 042
     Dates: start: 20100719, end: 20100726
  17. VITAMIN B12 [Concomitant]

REACTIONS (6)
  - METASTASES TO BONE [None]
  - BRONCHOPLEURAL FISTULA [None]
  - PNEUMONIA BACTERIAL [None]
  - TUMOUR NECROSIS [None]
  - RADIATION OESOPHAGITIS [None]
  - PULMONARY FIBROSIS [None]
